FAERS Safety Report 22856754 (Version 2)
Quarter: 2024Q2

REPORT INFORMATION
  Report Type: Spontaneous
  Country: US (occurrence: US)
  Receive Date: 20230823
  Receipt Date: 20240521
  Transmission Date: 20240716
  Serious: No
  Sender: FDA-Public Use
  Company Number: US-BIOGEN-2023BI01222067

PATIENT
  Sex: Female

DRUGS (1)
  1. SPINRAZA [Suspect]
     Active Substance: NUSINERSEN
     Indication: Spinal muscular atrophy
     Route: 050

REACTIONS (8)
  - Asthenia [Unknown]
  - Therapeutic response shortened [Not Recovered/Not Resolved]
  - Procedural dizziness [Recovered/Resolved]
  - Procedural nausea [Recovered/Resolved]
  - Post lumbar puncture syndrome [Recovered/Resolved]
  - Procedural pain [Recovered/Resolved]
  - Procedural complication [Recovered/Resolved]
  - Protein urine present [Not Recovered/Not Resolved]

NARRATIVE: CASE EVENT DATE: 20240101
